FAERS Safety Report 16379393 (Version 2)
Quarter: 2021Q1

REPORT INFORMATION
  Report Type: Spontaneous
  Country: US (occurrence: US)
  Receive Date: 20190531
  Receipt Date: 20210304
  Transmission Date: 20210419
  Serious: Yes (Death, Other)
  Sender: FDA-Public Use
  Company Number: US-PURDUE-USA-2019-0147324

PATIENT
  Age: 50 Year
  Sex: Female

DRUGS (1)
  1. OXYCONTIN [Suspect]
     Active Substance: OXYCODONE HYDROCHLORIDE
     Indication: SYSTEMIC LUPUS ERYTHEMATOSUS
     Dosage: UNK, BID
     Route: 048

REACTIONS (4)
  - Intraventricular haemorrhage [Unknown]
  - Coma [None]
  - Haemorrhage [Fatal]
  - Overdose [Fatal]

NARRATIVE: CASE EVENT DATE: 200404
